FAERS Safety Report 22045891 (Version 1)
Quarter: 2023Q1

REPORT INFORMATION
  Report Type: Spontaneous
  Country: CN (occurrence: CN)
  Receive Date: 20230228
  Receipt Date: 20230228
  Transmission Date: 20230418
  Serious: Yes (Other)
  Sender: FDA-Public Use
  Company Number: CN-MLMSERVICE-20230210-4101541-2

PATIENT
  Age: 52 Year
  Sex: Female

DRUGS (63)
  1. GEMCITABINE HYDROCHLORIDE [Suspect]
     Active Substance: GEMCITABINE HYDROCHLORIDE
     Indication: Metastases to bladder
     Dosage: 1.5 G ON D1, D8, D15
     Route: 042
     Dates: start: 20170914
  2. GEMCITABINE HYDROCHLORIDE [Suspect]
     Active Substance: GEMCITABINE HYDROCHLORIDE
     Indication: Ovarian cancer metastatic
     Dosage: 1.2 G ON D1, 1.0 G ON D8
     Route: 042
     Dates: start: 20171021
  3. GEMCITABINE HYDROCHLORIDE [Suspect]
     Active Substance: GEMCITABINE HYDROCHLORIDE
     Indication: Metastases to stomach
     Dosage: 1.0 G ON D1,D8
     Route: 042
     Dates: start: 20171122
  4. GEMCITABINE HYDROCHLORIDE [Suspect]
     Active Substance: GEMCITABINE HYDROCHLORIDE
     Indication: Metastases to rectum
  5. GEMCITABINE HYDROCHLORIDE [Suspect]
     Active Substance: GEMCITABINE HYDROCHLORIDE
     Indication: Serous cystadenocarcinoma ovary
  6. GEMCITABINE HYDROCHLORIDE [Suspect]
     Active Substance: GEMCITABINE HYDROCHLORIDE
     Indication: Metastases to pleura
  7. GEMCITABINE HYDROCHLORIDE [Suspect]
     Active Substance: GEMCITABINE HYDROCHLORIDE
     Indication: Metastases to lymph nodes
  8. IRINOTECAN [Suspect]
     Active Substance: IRINOTECAN
     Indication: Metastases to lymph nodes
     Dosage: 120 MG ON D1, D8, D15  IV X 7 CYCLES
     Route: 042
     Dates: start: 201804, end: 201810
  9. IRINOTECAN [Suspect]
     Active Substance: IRINOTECAN
     Indication: Metastases to bladder
  10. IRINOTECAN [Suspect]
     Active Substance: IRINOTECAN
     Indication: Metastases to rectum
  11. IRINOTECAN [Suspect]
     Active Substance: IRINOTECAN
     Indication: Metastases to pleura
  12. IRINOTECAN [Suspect]
     Active Substance: IRINOTECAN
     Indication: Metastases to stomach
  13. IRINOTECAN [Suspect]
     Active Substance: IRINOTECAN
     Indication: Ovarian cancer metastatic
  14. IRINOTECAN [Suspect]
     Active Substance: IRINOTECAN
     Indication: Serous cystadenocarcinoma ovary
  15. DOXORUBICIN [Suspect]
     Active Substance: DOXORUBICIN
     Indication: Ovarian cancer metastatic
     Dosage: 200 MG
     Route: 042
     Dates: start: 20191115, end: 20200207
  16. DOXORUBICIN [Suspect]
     Active Substance: DOXORUBICIN
     Indication: Metastases to bladder
     Dosage: 50 MG, CYCLICAL
     Route: 042
     Dates: start: 20200307, end: 2020
  17. DOXORUBICIN [Suspect]
     Active Substance: DOXORUBICIN
     Indication: Metastases to pleura
     Dosage: 150 MG
     Route: 042
     Dates: start: 20200408, end: 20200610
  18. DOXORUBICIN [Suspect]
     Active Substance: DOXORUBICIN
     Indication: Metastases to rectum
  19. DOXORUBICIN [Suspect]
     Active Substance: DOXORUBICIN
     Indication: Metastases to lymph nodes
  20. DOXORUBICIN [Suspect]
     Active Substance: DOXORUBICIN
     Indication: Metastases to stomach
  21. DOXORUBICIN [Suspect]
     Active Substance: DOXORUBICIN
     Indication: Serous cystadenocarcinoma ovary
  22. DOCETAXEL [Suspect]
     Active Substance: DOCETAXEL
     Indication: Metastases to lymph nodes
     Dosage: 120 MG
     Route: 042
     Dates: start: 20171227
  23. DOCETAXEL [Suspect]
     Active Substance: DOCETAXEL
     Indication: Ovarian cancer metastatic
     Dosage: 115 MG, CYCLICAL
     Route: 042
     Dates: start: 20180201, end: 20180228
  24. DOCETAXEL [Suspect]
     Active Substance: DOCETAXEL
     Indication: Metastases to pleura
  25. DOCETAXEL [Suspect]
     Active Substance: DOCETAXEL
     Indication: Metastases to rectum
  26. DOCETAXEL [Suspect]
     Active Substance: DOCETAXEL
     Indication: Metastases to stomach
  27. DOCETAXEL [Suspect]
     Active Substance: DOCETAXEL
     Indication: Metastases to bladder
  28. DOCETAXEL [Suspect]
     Active Substance: DOCETAXEL
     Indication: Serous cystadenocarcinoma ovary
  29. CISPLATIN [Suspect]
     Active Substance: CISPLATIN
     Indication: Ovarian cancer metastatic
     Dosage: 110 MG, CYCLICAL
     Route: 042
     Dates: start: 20170914
  30. CISPLATIN [Suspect]
     Active Substance: CISPLATIN
     Indication: Metastases to bladder
     Dosage: 80 MG, CYCLICAL
     Route: 042
     Dates: start: 20171021
  31. CISPLATIN [Suspect]
     Active Substance: CISPLATIN
     Indication: Metastases to stomach
     Dosage: 80 MG, CYCLICAL
     Route: 042
     Dates: start: 20171122
  32. CISPLATIN [Suspect]
     Active Substance: CISPLATIN
     Indication: Metastases to lymph nodes
     Dosage: 80 MG, CYCLICAL
     Route: 042
     Dates: start: 20171227
  33. CISPLATIN [Suspect]
     Active Substance: CISPLATIN
     Indication: Metastases to rectum
     Dosage: 115 MG, CYCLICAL
     Route: 042
     Dates: start: 20180201, end: 20180228
  34. CISPLATIN [Suspect]
     Active Substance: CISPLATIN
     Indication: Metastases to pleura
     Dosage: 120 MG, CYCLICAL
     Route: 042
     Dates: start: 20200307, end: 2020
  35. CISPLATIN [Suspect]
     Active Substance: CISPLATIN
     Indication: Serous cystadenocarcinoma ovary
     Dosage: 360 MG, CYCLICAL
     Route: 042
     Dates: start: 20200408, end: 20200610
  36. BEVACIZUMAB [Suspect]
     Active Substance: BEVACIZUMAB
     Indication: Ovarian cancer metastatic
     Dosage: BEVACIZUMAB 300 MG Q3W IV X 7 CYCLES
     Route: 042
     Dates: start: 201804, end: 201810
  37. BEVACIZUMAB [Suspect]
     Active Substance: BEVACIZUMAB
     Indication: Metastases to rectum
     Dosage: 2400 MG
     Route: 042
     Dates: start: 20190614, end: 20191017
  38. BEVACIZUMAB [Suspect]
     Active Substance: BEVACIZUMAB
     Indication: Metastases to stomach
     Dosage: 1920 MG
     Route: 042
     Dates: start: 20191115, end: 20200207
  39. BEVACIZUMAB [Suspect]
     Active Substance: BEVACIZUMAB
     Indication: Metastases to pleura
     Dosage: 480 MG
     Route: 042
     Dates: start: 20200307, end: 2020
  40. BEVACIZUMAB [Suspect]
     Active Substance: BEVACIZUMAB
     Indication: Metastases to bladder
  41. BEVACIZUMAB [Suspect]
     Active Substance: BEVACIZUMAB
     Indication: Metastases to lymph nodes
  42. BEVACIZUMAB [Suspect]
     Active Substance: BEVACIZUMAB
     Indication: Serous cystadenocarcinoma ovary
  43. CARBOPLATIN [Suspect]
     Active Substance: CARBOPLATIN
     Indication: Serous cystadenocarcinoma ovary
     Dosage: 2700 MG
     Route: 042
     Dates: start: 2016
  44. CARBOPLATIN [Suspect]
     Active Substance: CARBOPLATIN
     Indication: Metastases to lymph nodes
     Dosage: 1840 MG, CYCLICAL
     Route: 042
     Dates: start: 20170529, end: 20170809
  45. CARBOPLATIN [Suspect]
     Active Substance: CARBOPLATIN
     Indication: Metastases to rectum
  46. CARBOPLATIN [Suspect]
     Active Substance: CARBOPLATIN
     Indication: Metastases to pleura
  47. CARBOPLATIN [Suspect]
     Active Substance: CARBOPLATIN
     Indication: Metastases to stomach
  48. CARBOPLATIN [Suspect]
     Active Substance: CARBOPLATIN
     Indication: Metastases to bladder
  49. CARBOPLATIN [Suspect]
     Active Substance: CARBOPLATIN
     Indication: Ovarian cancer metastatic
  50. PACLITAXEL [Suspect]
     Active Substance: PACLITAXEL
     Indication: Serous cystadenocarcinoma ovary
     Dosage: 1260 MG, CYCLICAL
     Route: 042
     Dates: start: 2016
  51. PACLITAXEL [Suspect]
     Active Substance: PACLITAXEL
     Indication: Metastases to bladder
     Dosage: 840 MG
     Route: 042
     Dates: start: 20170529, end: 20170809
  52. PACLITAXEL [Suspect]
     Active Substance: PACLITAXEL
     Indication: Metastases to stomach
  53. PACLITAXEL [Suspect]
     Active Substance: PACLITAXEL
     Indication: Metastases to rectum
  54. PACLITAXEL [Suspect]
     Active Substance: PACLITAXEL
     Indication: Metastases to lymph nodes
  55. PACLITAXEL [Suspect]
     Active Substance: PACLITAXEL
     Indication: Metastases to pleura
  56. PACLITAXEL [Suspect]
     Active Substance: PACLITAXEL
     Indication: Ovarian cancer metastatic
  57. OLAPARIB [Concomitant]
     Active Substance: OLAPARIB
     Indication: Ovarian cancer metastatic
     Dosage: 300 MG PO BID
     Route: 048
     Dates: start: 20190614, end: 20191017
  58. OLAPARIB [Concomitant]
     Active Substance: OLAPARIB
     Indication: Metastases to stomach
     Dosage: 300 MG PO BID
     Route: 048
     Dates: start: 201901, end: 201906
  59. OLAPARIB [Concomitant]
     Active Substance: OLAPARIB
     Indication: Metastases to rectum
  60. OLAPARIB [Concomitant]
     Active Substance: OLAPARIB
     Indication: Metastases to pleura
  61. OLAPARIB [Concomitant]
     Active Substance: OLAPARIB
     Indication: Metastases to bladder
  62. OLAPARIB [Concomitant]
     Active Substance: OLAPARIB
     Indication: Metastases to lymph nodes
  63. OLAPARIB [Concomitant]
     Active Substance: OLAPARIB
     Indication: Serous cystadenocarcinoma ovary

REACTIONS (1)
  - Chronic kidney disease [Unknown]

NARRATIVE: CASE EVENT DATE: 20200601
